FAERS Safety Report 5709080-4 (Version None)
Quarter: 2008Q2

REPORT INFORMATION
  Report Type: 
  Country: None (occurrence: None)
  Receive Date: 20080418
  Receipt Date: 20080407
  Transmission Date: 20081010
  Serious: Yes (Hospitalization)
  Sender: FDA-Public Use
  Company Number: FR-JNJFOC-20080401917

PATIENT
  Age: 87 Year
  Sex: Female

DRUGS (4)
  1. OFLOXACIN [Suspect]
     Indication: URINARY TRACT INFECTION
     Route: 048
  2. APPROVEL [Concomitant]
     Indication: HYPERTENSION
     Route: 065
  3. COLCHICINE [Concomitant]
     Indication: CHONDROCALCINOSIS
     Route: 048
  4. VENLAFAXINE HCL [Concomitant]
     Indication: DEPRESSION
     Dosage: WAS STOPPED ON UNKNOWN DATE A FEW WEEKS BEFORE HOSPITALISATION
     Route: 065

REACTIONS (3)
  - AGITATION [None]
  - CONFUSIONAL STATE [None]
  - MEMORY IMPAIRMENT [None]
